FAERS Safety Report 9504767 (Version 2)
Quarter: 2013Q4

REPORT INFORMATION
  Report Type: Spontaneous
  Country: US (occurrence: US)
  Receive Date: 20130906
  Receipt Date: 20131017
  Transmission Date: 20140711
  Serious: Yes (Death, Life-Threatening)
  Sender: FDA-Public Use
  Company Number: US-B.I. PHARMACEUTICALS,INC./RIDGEFIELD-2013-BI-27538BP

PATIENT
  Age: 50 Year
  Sex: Male
  Weight: 117.93 kg

DRUGS (3)
  1. PRADAXA [Suspect]
     Indication: ATRIAL FIBRILLATION
     Dosage: 300 MG
     Route: 048
     Dates: start: 2012
  2. METOPROLOL [Concomitant]
     Indication: ATRIAL FIBRILLATION
     Dosage: 100 MG
     Dates: start: 2006
  3. VASOTEC [Concomitant]
     Indication: HYPERTENSION
     Dosage: 20 MG
     Dates: start: 2006

REACTIONS (2)
  - Gastrointestinal haemorrhage [Fatal]
  - Road traffic accident [Unknown]
